FAERS Safety Report 9851759 (Version 3)
Quarter: 2014Q1

REPORT INFORMATION
  Report Type: Report from Study
  Country: DE (occurrence: DE)
  Receive Date: 20140129
  Receipt Date: 20140203
  Transmission Date: 20141002
  Serious: Yes (Death, Life-Threatening, Hospitalization, Other)
  Sender: FDA-Public Use
  Company Number: DE-ROCHE-1330713

PATIENT
  Age: 55 Year
  Sex: Female
  Weight: 87 kg

DRUGS (6)
  1. BEVACIZUMAB [Suspect]
     Indication: COLON CANCER METASTATIC
     Dosage: LAST DOSE PRIOR TO INTESTINAL PERFORATION AND ASCITES: 14/JAN/2014
     Route: 042
     Dates: start: 20131218
  2. OXALIPLATIN [Suspect]
     Indication: COLON CANCER METASTATIC
     Route: 042
     Dates: start: 20131218
  3. 5-FU [Suspect]
     Indication: COLON CANCER METASTATIC
     Route: 042
     Dates: start: 20131218
  4. NOVAMINSULFON [Concomitant]
     Indication: PAIN
     Route: 065
     Dates: start: 20140102
  5. TILIDIN [Concomitant]
     Indication: PAIN
     Route: 048
     Dates: start: 20140102
  6. TORASEMID [Concomitant]
     Indication: OEDEMA PERIPHERAL
     Route: 048

REACTIONS (7)
  - Multi-organ failure [Fatal]
  - Ascites [Not Recovered/Not Resolved]
  - Intestinal perforation [Not Recovered/Not Resolved]
  - Abdominal pain [Not Recovered/Not Resolved]
  - Subileus [Unknown]
  - Dyspnoea [Not Recovered/Not Resolved]
  - Hypokalaemia [Not Recovered/Not Resolved]
